FAERS Safety Report 7119875-0 (Version None)
Quarter: 2010Q4

REPORT INFORMATION
  Report Type: 
  Country: None (occurrence: None)
  Receive Date: 20101123
  Receipt Date: 20101025
  Transmission Date: 20110411
  Serious: No
  Sender: FDA-Public Use
  Company Number: US-BRISTOL-MYERS SQUIBB COMPANY-15298110

PATIENT
  Age: 63 Year
  Sex: Female
  Weight: 87 kg

DRUGS (11)
  1. METFORMIN HCL [Suspect]
     Indication: DIABETES MELLITUS
     Dates: start: 19940101
  2. ONGLYZA [Suspect]
     Route: 048
     Dates: start: 20100920
  3. VYTORIN [Suspect]
  4. LEVEMIR [Concomitant]
  5. PRED FORTE [Concomitant]
  6. ZYMAR [Concomitant]
  7. ACTOS [Concomitant]
  8. VYTORIN [Concomitant]
  9. LEVEMIR [Concomitant]
  10. PREDNISONE [Concomitant]
  11. ANTIBIOTIC [Concomitant]

REACTIONS (3)
  - BLOOD GLUCOSE INCREASED [None]
  - FLUID RETENTION [None]
  - MUSCLE SPASMS [None]
